FAERS Safety Report 15797058 (Version 1)
Quarter: 2019Q1

REPORT INFORMATION
  Report Type: Spontaneous
  Country: US (occurrence: US)
  Receive Date: 20190107
  Receipt Date: 20190107
  Transmission Date: 20190417
  Serious: Yes (Disabling, Other)
  Sender: FDA-Public Use
  Company Number: None

PATIENT
  Age: 18 Year
  Sex: Female
  Weight: 45 kg

DRUGS (7)
  1. NORTRIPTYLINE [Concomitant]
     Active Substance: NORTRIPTYLINE
  2. MINOCYCLINE [Concomitant]
     Active Substance: MINOCYCLINE\MINOCYCLINE HYDROCHLORIDE
  3. DULOXETINE. [Concomitant]
     Active Substance: DULOXETINE
  4. BUPROPION. [Suspect]
     Active Substance: BUPROPION
     Indication: DEPRESSION
     Dosage: ?          QUANTITY:2 TABLET(S);?
     Route: 048
     Dates: start: 20181003
  5. SERTRALINE [Suspect]
     Active Substance: SERTRALINE HYDROCHLORIDE
     Indication: ANXIETY
     Dosage: ?          QUANTITY:1 TABLET(S);?
     Route: 048
  6. HYDROXYZINE [Concomitant]
     Active Substance: HYDROXYZINE HYDROCHLORIDE
  7. BUPROPION. [Suspect]
     Active Substance: BUPROPION
     Indication: NON-24-HOUR SLEEP-WAKE DISORDER
     Dosage: ?          QUANTITY:2 TABLET(S);?
     Route: 048
     Dates: start: 20181003

REACTIONS (9)
  - Fatigue [None]
  - Social avoidant behaviour [None]
  - Mood swings [None]
  - Confusional state [None]
  - Memory impairment [None]
  - Educational problem [None]
  - Decreased appetite [None]
  - Intentional self-injury [None]
  - Hallucinations, mixed [None]

NARRATIVE: CASE EVENT DATE: 20190106
